FAERS Safety Report 7926912-X (Version None)
Quarter: 2011Q4

REPORT INFORMATION
  Report Type: 
  Country: None (occurrence: None)
  Receive Date: 20111118
  Receipt Date: 20111108
  Transmission Date: 20120403
  Serious: Yes (Other)
  Sender: FDA-Public Use
  Company Number: US-ELI_LILLY_AND_COMPANY-US201111002440

PATIENT
  Sex: Female
  Weight: 136.5 kg

DRUGS (10)
  1. BYETTA [Suspect]
     Dosage: 10 UG, BID
     Route: 058
     Dates: start: 20111001
  2. ENALAPRIL MALEATE [Concomitant]
     Indication: HYPERTENSION
     Dosage: UNK
     Dates: end: 20110801
  3. FUROSEMIDE [Concomitant]
     Dosage: 10 MG, UNK
     Route: 048
     Dates: start: 20110801
  4. GLYBURIDE [Concomitant]
     Indication: TYPE 2 DIABETES MELLITUS
     Dosage: 5 MG, BID
     Route: 048
  5. METFORMIN HCL [Concomitant]
     Indication: TYPE 2 DIABETES MELLITUS
     Dosage: UNK
     Dates: end: 20110801
  6. OMEPRAZOLE [Concomitant]
     Indication: ERUCTATION
     Dosage: 20 MG, BID
     Route: 048
     Dates: start: 20110701
  7. FUROSEMIDE [Concomitant]
     Indication: HYPERTENSION
     Dosage: 40 MG, UNK
     Dates: end: 20110801
  8. POTASSIUM [Concomitant]
     Indication: SUPPLEMENTATION THERAPY
     Dosage: UNK
     Dates: end: 20110801
  9. BYETTA [Suspect]
     Indication: TYPE 2 DIABETES MELLITUS
     Dosage: 5 UG, BID
     Route: 058
  10. ACTOS [Concomitant]
     Indication: TYPE 2 DIABETES MELLITUS
     Dosage: UNK
     Dates: end: 20110801

REACTIONS (9)
  - GLYCOSYLATED HAEMOGLOBIN INCREASED [None]
  - FLANK PAIN [None]
  - NASOPHARYNGITIS [None]
  - DISTURBANCE IN ATTENTION [None]
  - BLOOD GLUCOSE INCREASED [None]
  - ASTHENIA [None]
  - RENAL CANCER [None]
  - ERUCTATION [None]
  - BLOOD GLUCOSE DECREASED [None]
